FAERS Safety Report 4645343-1 (Version None)
Quarter: 2005Q2

REPORT INFORMATION
  Report Type: 
  Country: None (occurrence: None)
  Receive Date: 20050426
  Receipt Date: 20050421
  Transmission Date: 20051028
  Serious: Yes (Death)
  Sender: FDA-Public Use
  Company Number: GR-ABBOTT-05P-066-0298167-00

PATIENT
  Sex: Male
  Weight: 71 kg

DRUGS (2)
  1. HUMIRA [Suspect]
     Indication: RHEUMATOID ARTHRITIS
     Route: 058
     Dates: start: 20050204, end: 20050324
  2. T-MODURETIC [Concomitant]
     Indication: HYPERTENSION
     Dates: start: 20040201, end: 20050323

REACTIONS (1)
  - DEATH [None]
